FAERS Safety Report 6963454 (Version 13)
Quarter: 2014Q2

REPORT INFORMATION
  Report Type: Spontaneous
  Country: US (occurrence: US)
  Receive Date: 20090408
  Receipt Date: 20140516
  Transmission Date: 20141212
  Serious: Yes (Death, Hospitalization, Other)
  Sender: FDA-Public Use
  Company Number: PHEH2009US03382

PATIENT
  Age: 55 Year
  Sex: Male
  Weight: 63.5 kg

DRUGS (34)
  1. AREDIA [Suspect]
     Dosage: 90 MG, QMO
     Route: 042
     Dates: start: 20040930, end: 20060706
  2. ZOMETA [Suspect]
     Dosage: 4 MG, QMO
     Route: 042
  3. TYLENOL [Concomitant]
  4. ENALAPRIL [Concomitant]
  5. HYDROCHLOROTHIAZIDE [Concomitant]
  6. MORPHINE SULFATE [Concomitant]
  7. LASIX [Concomitant]
  8. ATENOLOL [Concomitant]
  9. LISINOPRIL [Concomitant]
  10. MAGNESIUM OXIDE [Concomitant]
  11. VASOTEC [Concomitant]
  12. LOVENOX [Concomitant]
  13. PERIDEX [Concomitant]
  14. CLINDAMYCIN [Concomitant]
  15. FLOMAX ^BOEHRINGER INGELHEIM^ [Concomitant]
  16. OXYCONTIN [Concomitant]
  17. NYSTATIN [Concomitant]
  18. CALCITONIN [Concomitant]
  19. PREDNISONE [Concomitant]
  20. INTERFERON ALFA-2B [Concomitant]
  21. DIPHENHYDRAMINE [Concomitant]
  22. MEGESTROL ACETATE [Concomitant]
     Dosage: 40 MG,
  23. CEFTRIAXONE [Concomitant]
  24. TEMAZEPAM [Concomitant]
  25. TEMSIROLIMUS [Concomitant]
     Dates: start: 20080109, end: 20080109
  26. RANITIDINE [Concomitant]
  27. FLUCONAZOLE [Concomitant]
  28. BEVACIZUMAB [Concomitant]
  29. PENICILLIN [Concomitant]
  30. VARDENAFIL [Concomitant]
     Dates: start: 20060302, end: 20070303
  31. SILDENAFIL CITRATE [Concomitant]
     Dates: start: 20051214, end: 20061215
  32. BUPROPION [Concomitant]
  33. CLONIDIN [Concomitant]
     Indication: HYPERTENSION
  34. SUTENT [Concomitant]

REACTIONS (99)
  - Death [Fatal]
  - Abdominal pain upper [Unknown]
  - Haematochezia [Unknown]
  - Pancreatitis [Unknown]
  - Presyncope [Unknown]
  - Bradycardia [Unknown]
  - Osteonecrosis of jaw [Unknown]
  - Injury [Unknown]
  - Disability [Unknown]
  - Pain [Unknown]
  - Anxiety [Unknown]
  - Anhedonia [Unknown]
  - Pollakiuria [Unknown]
  - Blood urine present [Unknown]
  - Osteoarthritis [Unknown]
  - Intervertebral disc protrusion [Unknown]
  - Deep vein thrombosis [Unknown]
  - Osteitis deformans [Unknown]
  - Pubis fracture [Unknown]
  - Hypercalcaemia [Recovered/Resolved]
  - Influenza like illness [Unknown]
  - Myalgia [Unknown]
  - Renal failure acute [Unknown]
  - Azotaemia [Recovered/Resolved]
  - Anaemia [Unknown]
  - Weight decreased [Unknown]
  - Dyspepsia [Unknown]
  - Osteolysis [Unknown]
  - Hilar lymphadenopathy [Unknown]
  - Neoplasm progression [Unknown]
  - Metastases to lung [Not Recovered/Not Resolved]
  - Adenocarcinoma [Unknown]
  - Adrenal neoplasm [Unknown]
  - Pulmonary mass [Unknown]
  - Cerebral artery thrombosis [Unknown]
  - Osteoporosis [Unknown]
  - Musculoskeletal discomfort [Unknown]
  - Arthralgia [Unknown]
  - Atelectasis [Unknown]
  - Bone pain [Unknown]
  - Cachexia [Unknown]
  - Depression [Unknown]
  - Insomnia [Unknown]
  - Acetabulum fracture [Unknown]
  - Hepatic lesion [Unknown]
  - Pruritus [Unknown]
  - Dyspnoea [Unknown]
  - Electrocardiogram ST segment depression [Unknown]
  - Pulmonary embolism [Unknown]
  - Hyperparathyroidism [Unknown]
  - Pain in extremity [Unknown]
  - Hyperkalaemia [Unknown]
  - Diarrhoea [Unknown]
  - Headache [Unknown]
  - Visual impairment [Unknown]
  - Asthenia [Unknown]
  - Pancreatic calcification [Unknown]
  - Nephrolithiasis [Unknown]
  - Pleural effusion [Unknown]
  - Tooth loss [Unknown]
  - Mouth ulceration [Unknown]
  - Exposed bone in jaw [Unknown]
  - Malignant neoplasm progression [Unknown]
  - Rash [Unknown]
  - Hyperhidrosis [Unknown]
  - Impaired healing [Unknown]
  - Osteomyelitis [Unknown]
  - Spinal osteoarthritis [Unknown]
  - Constipation [Unknown]
  - Sinus tachycardia [Unknown]
  - Oral candidiasis [Unknown]
  - Thrombocytopenia [Unknown]
  - Erectile dysfunction [Unknown]
  - Hypotension [Unknown]
  - Pneumonia [Unknown]
  - Hypoxia [Unknown]
  - Lymphoedema [Not Recovered/Not Resolved]
  - Chronic obstructive pulmonary disease [Unknown]
  - Hypermagnesaemia [Unknown]
  - Hypophosphataemia [Unknown]
  - Gastrooesophageal reflux disease [Unknown]
  - Electrocardiogram T wave abnormal [Unknown]
  - Hypokalaemia [Unknown]
  - Dizziness [Unknown]
  - Metastases to bone [Unknown]
  - Metastases to lymph nodes [Unknown]
  - Acute myocardial infarction [Unknown]
  - Chest pain [Unknown]
  - Arrhythmia [Unknown]
  - Generalised tonic-clonic seizure [Unknown]
  - Bursitis [Unknown]
  - Renal cyst [Unknown]
  - Oedema [Unknown]
  - Pain in jaw [Unknown]
  - Mastication disorder [Unknown]
  - Renal failure chronic [Unknown]
  - Gait disturbance [Unknown]
  - Pelvic mass [Unknown]
  - Lymphadenopathy [Unknown]
